FAERS Safety Report 8972702 (Version 1)
Quarter: 2012Q4

REPORT INFORMATION
  Report Type: Report from Study
  Country: US (occurrence: US)
  Receive Date: 20121218
  Receipt Date: 20121218
  Transmission Date: 20130627
  Serious: Yes (Hospitalization)
  Sender: FDA-Public Use
  Company Number: US-MYLANLABS-2012S1025201

PATIENT
  Age: 76 Year
  Sex: Male
  Weight: 69 kg

DRUGS (12)
  1. METOPROLOL [Suspect]
     Indication: HYPERTENSION
     Route: 048
  2. METOPROLOL [Suspect]
     Indication: HYPERTENSION
     Route: 048
  3. VALSARTAN [Suspect]
     Indication: HYPERTENSION
     Route: 048
     Dates: end: 20090704
  4. ISOSORBIDE MONONITRATE [Suspect]
     Indication: HYPERTENSION
     Dates: end: 20090704
  5. MAXZIDE [Suspect]
     Indication: HYPERTENSION
     Route: 048
     Dates: end: 20090704
  6. BLINDED THERAPY [Suspect]
     Indication: PRODUCT USED FOR UNKNOWN INDICATION
     Dates: start: 20090509
  7. GABAPENTIN [Concomitant]
     Indication: PRODUCT USED FOR UNKNOWN INDICATION
  8. CLOPIDOGREL [Concomitant]
     Indication: PRODUCT USED FOR UNKNOWN INDICATION
  9. LOVASTATIN [Concomitant]
     Indication: PRODUCT USED FOR UNKNOWN INDICATION
     Dates: start: 20090703, end: 20090703
  10. FLUOXETINE [Concomitant]
     Indication: PRODUCT USED FOR UNKNOWN INDICATION
     Dates: start: 20090627, end: 20090704
  11. ASPIRIN [Concomitant]
     Indication: PRODUCT USED FOR UNKNOWN INDICATION
     Dates: start: 20090630, end: 20090704
  12. PROTONIX [Concomitant]
     Indication: PRODUCT USED FOR UNKNOWN INDICATION
     Dates: start: 20090703, end: 20090704

REACTIONS (4)
  - Sick sinus syndrome [Not Recovered/Not Resolved]
  - Blood creatinine increased [Recovering/Resolving]
  - Confusional state [Unknown]
  - Hypotension [Recovered/Resolved]
